FAERS Safety Report 18502987 (Version 2)
Quarter: 2020Q4

REPORT INFORMATION
  Report Type: Spontaneous
  Country: US (occurrence: US)
  Receive Date: 20201113
  Receipt Date: 20201222
  Transmission Date: 20210114
  Serious: Yes (Death, Other)
  Sender: FDA-Public Use
  Company Number: US-EPIC PHARMA LLC-2020EPC00351

PATIENT
  Age: 39 Year
  Sex: Female
  Weight: 68.03 kg

DRUGS (10)
  1. DIAZEPAM. [Suspect]
     Active Substance: DIAZEPAM
  2. NORDIAZEPAM [Suspect]
     Active Substance: NORDAZEPAM
  3. OXYCODONE [Suspect]
     Active Substance: OXYCODONE
  4. OXYMORPHONE [Suspect]
     Active Substance: OXYMORPHONE
     Indication: PAIN
  5. METOPROLOL. [Suspect]
     Active Substance: METOPROLOL
  6. HYDROCODONE [Suspect]
     Active Substance: HYDROCODONE
  7. OXYCONTIN [Suspect]
     Active Substance: OXYCODONE HYDROCHLORIDE
  8. PERCOCET [Suspect]
     Active Substance: ACETAMINOPHEN\OXYCODONE HYDROCHLORIDE
  9. UNSPECIFIED THYROID MEDICATION [Concomitant]
     Active Substance: UNSPECIFIED INGREDIENT
  10. ETHYL ALCOHOL [Concomitant]
     Active Substance: ALCOHOL

REACTIONS (3)
  - Overdose [Fatal]
  - Dependence [Unknown]
  - Completed suicide [Fatal]

NARRATIVE: CASE EVENT DATE: 20130924
